FAERS Safety Report 15429582 (Version 1)
Quarter: 2018Q3

REPORT INFORMATION
  Report Type: Spontaneous
  Country: US (occurrence: US)
  Receive Date: 20180926
  Receipt Date: 20180926
  Transmission Date: 20181010
  Serious: Yes (Other)
  Sender: FDA-Public Use
  Company Number: US-BAYER-2018-176938

PATIENT
  Sex: Female

DRUGS (1)
  1. BETASERON [Suspect]
     Active Substance: INTERFERON BETA-1B
     Dosage: UNK

REACTIONS (8)
  - Tongue movement disturbance [None]
  - Headache [None]
  - Hemiparesis [None]
  - Myalgia [None]
  - Pyrexia [None]
  - Influenza like illness [None]
  - Fatigue [None]
  - Malaise [None]
